FAERS Safety Report 16234947 (Version 2)
Quarter: 2019Q2

REPORT INFORMATION
  Report Type: Spontaneous
  Country: US (occurrence: US)
  Receive Date: 20190424
  Receipt Date: 20190425
  Transmission Date: 20190711
  Serious: Yes (Hospitalization)
  Sender: FDA-Public Use
  Company Number: US-ALLERGAN-1915795US

PATIENT
  Sex: Male

DRUGS (14)
  1. DALVANCE [Suspect]
     Active Substance: DALBAVANCIN
     Indication: OSTEOMYELITIS
  2. VITAMIN D2 [Concomitant]
     Active Substance: ERGOCALCIFEROL
     Dosage: 3-1000
     Route: 065
  3. FLAGYL [Concomitant]
     Active Substance: METRONIDAZOLE\METRONIDAZOLE HYDROCHLORIDE
     Route: 065
  4. VITAMIN C [Concomitant]
     Active Substance: ASCORBIC ACID
     Dosage: 500 MG
     Route: 065
  5. BACLOFEN. [Concomitant]
     Active Substance: BACLOFEN
     Route: 065
  6. NAPROXEN. [Concomitant]
     Active Substance: NAPROXEN
     Dosage: 500
     Route: 065
  7. ROXICODONE [Concomitant]
     Active Substance: OXYCODONE HYDROCHLORIDE
     Dosage: 1500 MG, IR
     Route: 065
  8. PERCOCET [Concomitant]
     Active Substance: ACETAMINOPHEN\OXYCODONE HYDROCHLORIDE
     Dosage: 5-325
     Route: 065
  9. IRON [Concomitant]
     Active Substance: IRON
     Dosage: 325 MG
     Route: 065
  10. VITAMIN B12 [Concomitant]
     Active Substance: CYANOCOBALAMIN
     Dosage: 5000
     Route: 065
  11. LACTOBACILLUS [Concomitant]
     Active Substance: LACTOBACILLUS ACIDOPHILUS
     Route: 065
  12. DALVANCE [Suspect]
     Active Substance: DALBAVANCIN
     Indication: SKIN INFECTION
  13. MULTIVITAMINS [Concomitant]
     Active Substance: VITAMINS
     Route: 065
  14. DALVANCE [Suspect]
     Active Substance: DALBAVANCIN
     Indication: SOFT TISSUE INFECTION
     Dosage: 1500 MG, SINGLE
     Route: 042
     Dates: start: 20190408, end: 20190408

REACTIONS (10)
  - Off label use [Unknown]
  - Infusion site paraesthesia [Recovering/Resolving]
  - Infusion site erythema [Recovering/Resolving]
  - Infusion site haematoma [Recovering/Resolving]
  - Infusion site rash [Recovering/Resolving]
  - Infusion site pain [Recovering/Resolving]
  - Infusion site extravasation [Unknown]
  - Cellulitis [Unknown]
  - Infusion site hypoaesthesia [Recovering/Resolving]
  - Infusion site nodule [Recovering/Resolving]

NARRATIVE: CASE EVENT DATE: 20190408
